FAERS Safety Report 21500308 (Version 2)
Quarter: 2022Q4

REPORT INFORMATION
  Report Type: Spontaneous
  Country: RU (occurrence: RU)
  Receive Date: 20221024
  Receipt Date: 20221219
  Transmission Date: 20230113
  Serious: Yes (Hospitalization)
  Sender: FDA-Public Use
  Company Number: None

PATIENT
  Age: 10 Year
  Sex: Male
  Weight: 43 kg

DRUGS (1)
  1. FIASP [Suspect]
     Active Substance: INSULIN ASPART
     Indication: Type 1 diabetes mellitus
     Dosage: 30-36 IU PER DAY + 20-30 IU PER CARTRIDGE TO REFILL INFUSION SYSTEM
     Route: 058
     Dates: start: 20220822, end: 20220925

REACTIONS (3)
  - Insulin resistance [Recovered/Resolved]
  - Blood glucose fluctuation [Recovered/Resolved]
  - Drug ineffective [Recovered/Resolved]

NARRATIVE: CASE EVENT DATE: 20220801
